FAERS Safety Report 12549895 (Version 1)
Quarter: 2016Q3

REPORT INFORMATION
  Report Type: Spontaneous
  Country: FR (occurrence: FR)
  Receive Date: 20160712
  Receipt Date: 20160712
  Transmission Date: 20161109
  Serious: Yes (Hospitalization)
  Sender: FDA-Public Use
  Company Number: FR-INDIVIOR LIMITED-INDV-091927-2016

PATIENT
  Age: 37 Year
  Sex: Male

DRUGS (5)
  1. SUBUTEX [Suspect]
     Active Substance: BUPRENORPHINE HYDROCHLORIDE
     Indication: DRUG DEPENDENCE
     Dosage: 2 MG, QID
     Route: 042
     Dates: start: 200801
  2. SUBUTEX [Suspect]
     Active Substance: BUPRENORPHINE HYDROCHLORIDE
     Dosage: 2 MG, UNK
     Route: 045
     Dates: start: 2015
  3. SEROPLEX [Concomitant]
     Active Substance: ESCITALOPRAM OXALATE
     Indication: PRODUCT USED FOR UNKNOWN INDICATION
     Dosage: 1 DOSAGE FORM/TABLET A DAY
     Route: 065
     Dates: start: 2008
  4. XANAX [Concomitant]
     Active Substance: ALPRAZOLAM
     Indication: PRODUCT USED FOR UNKNOWN INDICATION
     Dosage: UNK, 3 TIMES A DAY
     Route: 065
     Dates: start: 2008
  5. ATARAX [Concomitant]
     Active Substance: HYDROXYZINE\HYDROXYZINE HYDROCHLORIDE
     Indication: PRODUCT USED FOR UNKNOWN INDICATION
     Dosage: 25MG, 2 TABLETS IN THE EVENING
     Route: 065
     Dates: start: 2008

REACTIONS (8)
  - Oedema peripheral [Unknown]
  - Rhinorrhoea [Not Recovered/Not Resolved]
  - Intentional product misuse [Unknown]
  - Hyposmia [Unknown]
  - Nasal obstruction [Not Recovered/Not Resolved]
  - Nasal inflammation [Recovered/Resolved]
  - Headache [Unknown]
  - Myalgia [Unknown]

NARRATIVE: CASE EVENT DATE: 200801
